FAERS Safety Report 4314420-7 (Version None)
Quarter: 2004Q1

REPORT INFORMATION
  Report Type: 
  Country: None (occurrence: None)
  Receive Date: 20040308
  Receipt Date: 20040224
  Transmission Date: 20041129
  Serious: Yes (Death)
  Sender: FDA-Public Use
  Company Number: US-JNJFOC-20040205421

PATIENT
  Age: 74 Year
  Sex: Female

DRUGS (1)
  1. DOXIL [Suspect]
     Indication: OVARIAN CANCER
     Dosage: 80 MG, 1 IN 1 MONTH, INTRAVENOUS
     Route: 042
     Dates: start: 20031029, end: 20031224

REACTIONS (1)
  - MYOCARDIAL INFARCTION [None]
